FAERS Safety Report 10094990 (Version 1)
Quarter: 2014Q2

REPORT INFORMATION
  Report Type: Report from Study
  Country: US (occurrence: US)
  Receive Date: 20140422
  Receipt Date: 20140422
  Transmission Date: 20141212
  Serious: Yes (Other)
  Sender: FDA-Public Use
  Company Number: PHEH2014US007886

PATIENT
  Sex: Female

DRUGS (7)
  1. DIOVAN HCT [Suspect]
     Indication: HYPERTENSION
     Dosage: 1.5 DF, QD (160 MG VALS AND 12.5 MG HCTZ)
     Route: 048
  2. MULTIPLE VITAMINS [Concomitant]
     Indication: EYE DISORDER
     Dosage: UNK UKN, UNK
  3. CALCIUM [Concomitant]
     Dosage: UNK UKN, UNK
  4. VITAMIN D [Concomitant]
     Dosage: UNK UKN, UNK
  5. CENTRUM [Concomitant]
     Dosage: UNK UKN, UNK
  6. ASPIRIN [Concomitant]
     Dosage: UNK UKN, UNK
  7. ANTI ALLERGIC AGENTS [Concomitant]
     Dosage: UNK UKN, UNK

REACTIONS (2)
  - Aneurysm [Unknown]
  - Wrong technique in drug usage process [Unknown]
